FAERS Safety Report 5399431-5 (Version None)
Quarter: 2007Q3

REPORT INFORMATION
  Report Type: 
  Country: None (occurrence: None)
  Receive Date: 20070727
  Receipt Date: 20070726
  Transmission Date: 20080115
  Serious: Yes (Other)
  Sender: FDA-Public Use
  Company Number: A0666238A

PATIENT
  Age: 45 Year
  Sex: Female

DRUGS (3)
  1. ALLI [Suspect]
     Route: 048
     Dates: start: 20070707, end: 20070718
  2. SYNTHROID [Concomitant]
  3. CYTOMEL [Concomitant]

REACTIONS (3)
  - CONSTIPATION [None]
  - RECTAL DISCHARGE [None]
  - RECTAL HAEMORRHAGE [None]
